FAERS Safety Report 8407031 (Version 4)
Quarter: 2014Q2

REPORT INFORMATION
  Report Type: Spontaneous
  Country: JP (occurrence: JP)
  Receive Date: 20120215
  Receipt Date: 20140417
  Transmission Date: 20141212
  Serious: Yes (Other)
  Sender: FDA-Public Use
  Company Number: JP-PFIZER INC-2012034794

PATIENT
  Age: 50 Year
  Sex: Female

DRUGS (2)
  1. AZULFIDINE [Suspect]
     Indication: ARTHRALGIA
     Dosage: 250 MG, 2X/DAY
     Route: 048
     Dates: start: 20101116, end: 20101124
  2. AZULFIDINE [Suspect]
     Indication: RHEUMATIC DISORDER
     Dosage: 200 MG, DAILY

REACTIONS (2)
  - Acute febrile neutrophilic dermatosis [Recovering/Resolving]
  - Erythema nodosum [Recovering/Resolving]
